FAERS Safety Report 4583570-2 (Version None)
Quarter: 2005Q1

REPORT INFORMATION
  Report Type: 
  Country: None (occurrence: None)
  Receive Date: 20050211
  Receipt Date: 20050202
  Transmission Date: 20050727
  Serious: Yes (Death)
  Sender: FDA-Public Use
  Company Number: 430001M05ESP

PATIENT
  Age: 34 Year
  Sex: Female

DRUGS (5)
  1. NOVANTRONE [Suspect]
     Indication: MULTIPLE SCLEROSIS
     Dosage: INTRAVENOUS
     Route: 042
     Dates: start: 20010701, end: 20020101
  2. COPAXONE [Concomitant]
  3. WATER (WATER FOR INJECTION) [Concomitant]
  4. LIORESAL [Concomitant]
  5. PROZAC [Concomitant]

REACTIONS (1)
  - CARDIAC FAILURE [None]
